FAERS Safety Report 5410753-1 (Version None)
Quarter: 2007Q3

REPORT INFORMATION
  Report Type: 
  Country: None (occurrence: None)
  Receive Date: 20070810
  Receipt Date: 20070227
  Transmission Date: 20080115
  Serious: No
  Sender: FDA-Public Use
  Company Number: A0641150A

PATIENT
  Age: 40 Year
  Sex: Female

DRUGS (2)
  1. PAXIL CR [Suspect]
     Indication: OBSESSIVE-COMPULSIVE DISORDER
     Dosage: 25MG PER DAY
     Route: 048
     Dates: start: 20070213
  2. PAIN MEDICATION [Concomitant]

REACTIONS (2)
  - ABDOMINAL DISTENSION [None]
  - WEIGHT INCREASED [None]
